FAERS Safety Report 9155951 (Version 3)
Quarter: 2015Q2

REPORT INFORMATION
  Report Type: Report from Study
  Country: DE (occurrence: DE)
  Receive Date: 20130311
  Receipt Date: 20150522
  Transmission Date: 20150821
  Serious: Yes (Hospitalization, Other)
  Sender: FDA-Public Use
  Company Number: DE-PFIZER INC-2011175801

PATIENT
  Age: 71 Year
  Sex: Female
  Weight: 106 kg

DRUGS (22)
  1. METOCLOPRAMIDE. [Concomitant]
     Active Substance: METOCLOPRAMIDE
     Indication: NAUSEA
     Dosage: 35 GTT, 1X/DAY
     Route: 048
     Dates: start: 20110518
  2. CIPROBAY [Concomitant]
     Active Substance: CIPROFLOXACIN
     Indication: NAIL BED INFECTION
     Dosage: 500 MG, 1X/DAY
     Route: 048
     Dates: start: 20110601, end: 20110603
  3. AMLODIPINE [Concomitant]
     Active Substance: AMLODIPINE BESYLATE
     Indication: HYPERTENSION
     Dosage: 10 MG, 1X/DAY
     Route: 048
     Dates: start: 201006
  4. ZYLORIC ^GLAXO WELLCOME^ [Concomitant]
     Indication: PREMEDICATION
     Dosage: 300 MG, UNK
     Route: 048
     Dates: start: 20110520
  5. CALCIUM [Concomitant]
     Active Substance: CALCIUM
     Indication: HYPOCALCAEMIA
     Dosage: 2 G, 1X/DAY
     Route: 048
     Dates: start: 20110617
  6. ASPIRIN. [Concomitant]
     Active Substance: ASPIRIN
     Indication: PROPHYLAXIS
     Dosage: 100 MG, 1X/DAY
     Route: 048
     Dates: start: 20110617
  7. METOPROLOL [Concomitant]
     Active Substance: METOPROLOL
     Indication: HYPERTENSION
     Dosage: 200 MG, 1X/DAY
     Route: 048
     Dates: start: 2008
  8. TORASEMIDE [Concomitant]
     Active Substance: TORSEMIDE
     Indication: HYPERTENSION
     Dosage: 20 MG, 1X/DAY
     Route: 048
     Dates: start: 2009
  9. BENURON [Concomitant]
     Indication: PREMEDICATION
     Dosage: 2 G, UNK
     Route: 048
     Dates: start: 20110520
  10. CETIRIZINE [Concomitant]
     Active Substance: CETIRIZINE HYDROCHLORIDE
     Indication: PREMEDICATION
     Dosage: 20 MG, UNK
     Route: 048
     Dates: start: 20110520
  11. RITUXIMAB [Suspect]
     Active Substance: RITUXIMAB
     Dosage: 750 MG, UNK
     Dates: start: 20110520, end: 20110825
  12. L-THYROXIN [Concomitant]
     Active Substance: LEVOTHYROXINE SODIUM
     Dosage: 200 UG, 1X/DAY
     Route: 048
     Dates: start: 2009
  13. ENALAPRIL [Concomitant]
     Active Substance: ENALAPRIL
     Indication: HYPERTENSION
     Dosage: 10 MG, 2X/DAY
     Route: 048
     Dates: start: 2008
  14. SIMVASTATIN. [Concomitant]
     Active Substance: SIMVASTATIN
     Indication: HYPERLIPIDAEMIA
     Dosage: 20 MG, 1X/DAY
     Route: 048
     Dates: start: 201010
  15. KEVATRIL [Concomitant]
     Active Substance: GRANISETRON HYDROCHLORIDE
     Indication: PREMEDICATION
     Dosage: 1 MG, UNK
     Route: 042
     Dates: start: 20110511
  16. BENDAMUSTINE [Suspect]
     Active Substance: BENDAMUSTINE
     Dosage: 180 MG, UNK
     Dates: start: 20110511, end: 20110825
  17. LOPEDIUM [Concomitant]
     Active Substance: LOPERAMIDE
     Indication: DIARRHOEA
     Dosage: UNK
     Route: 048
     Dates: start: 20110518
  18. VOMEX A ^ENDOPHARM^ [Concomitant]
     Indication: VOMITING
     Dosage: 62 MG, 1X/DAY
     Route: 042
     Dates: start: 20110615, end: 20110615
  19. TEMSIROLIMUS [Suspect]
     Active Substance: TEMSIROLIMUS
     Dosage: 50 MG, UNK
     Dates: start: 20110512, end: 20110825
  20. FENISTIL [Concomitant]
     Active Substance: DIMETHINDENE
     Indication: PREMEDICATION
     Dosage: 4 MG, UNK
     Route: 042
     Dates: start: 20110512
  21. PANTOZOL [Concomitant]
     Active Substance: PANTOPRAZOLE SODIUM
     Indication: PROPHYLAXIS
     Dosage: 80 MG, 1X/DAY
     Route: 048
     Dates: start: 20110518
  22. REKAWAN [Concomitant]
     Active Substance: POTASSIUM CHLORIDE
     Indication: HYPOKALAEMIA
     Dosage: 13.4 MMOL, UNK
     Route: 048
     Dates: start: 20110617

REACTIONS (1)
  - Angioedema [Recovered/Resolved]

NARRATIVE: CASE EVENT DATE: 20110725
